FAERS Safety Report 14565453 (Version 1)
Quarter: 2018Q1

REPORT INFORMATION
  Report Type: Spontaneous
  Country: US (occurrence: US)
  Receive Date: 20180223
  Receipt Date: 20180223
  Transmission Date: 20180509
  Serious: Yes (Other)
  Sender: FDA-Public Use
  Company Number: US-AMGEN-USASP2018022712

PATIENT
  Age: 60 Year
  Sex: Female
  Weight: 52.62 kg

DRUGS (7)
  1. NEUPOGEN [Suspect]
     Active Substance: FILGRASTIM
     Indication: WHITE BLOOD CELL COUNT DECREASED
     Dosage: UNK
     Route: 065
     Dates: start: 20170915
  2. CALCIUM + VIT D [Concomitant]
     Active Substance: CALCIUM\VITAMIN D
     Indication: PARATHYROID DISORDER
     Dosage: 600 MG, BID
     Dates: start: 2001
  3. IBRANCE [Concomitant]
     Active Substance: PALBOCICLIB
     Indication: METASTASES TO BONE
     Dosage: UNK, QD (FOR 3 WEEKS THEN REST FOR A WEEK)
     Route: 048
     Dates: start: 20170926
  4. SYNTHROID [Concomitant]
     Active Substance: LEVOTHYROXINE SODIUM
     Indication: HYPOTHYROIDISM
     Dosage: 125 MUG, QD
     Route: 048
     Dates: start: 2001
  5. IBRANCE [Concomitant]
     Active Substance: PALBOCICLIB
     Indication: BREAST CANCER STAGE IV
     Dosage: 125 MG, QD (BY MOUTH)
     Route: 048
     Dates: start: 20170901, end: 20170919
  6. LETROZOLE. [Concomitant]
     Active Substance: LETROZOLE
     Indication: BREAST CANCER
     Dosage: 2.5 MG, QD
     Route: 048
     Dates: start: 20170625
  7. GABAPENTIN. [Concomitant]
     Active Substance: GABAPENTIN
     Dosage: UNK (HAS NOT HAD TO TAKE IT FOR MORE THAN 3 WEEKS)

REACTIONS (1)
  - White blood cell count decreased [Unknown]

NARRATIVE: CASE EVENT DATE: 20170918
